FAERS Safety Report 5163607-2 (Version None)
Quarter: 2006Q4

REPORT INFORMATION
  Report Type: 
  Country: None (occurrence: None)
  Receive Date: 20061204
  Receipt Date: 20061122
  Transmission Date: 20070319
  Serious: Yes (Hospitalization, Other)
  Sender: FDA-Public Use
  Company Number: GB-JNJFOC-20061105297

PATIENT
  Sex: Male
  Weight: 64 kg

DRUGS (8)
  1. REMICADE [Suspect]
     Indication: ANKYLOSING SPONDYLITIS
     Route: 042
  2. SULFASALAZINE [Concomitant]
     Route: 065
  3. PREDNISOLONE [Concomitant]
     Route: 065
  4. ALPHAGAN [Concomitant]
     Route: 065
  5. DORZOLAMIDE HCL [Concomitant]
     Route: 065
  6. IRBESARTAN [Concomitant]
     Route: 065
  7. LANSOPRAZOLE [Concomitant]
     Route: 065
  8. PREGADAY [Concomitant]
     Route: 065

REACTIONS (1)
  - CORONARY ARTERY BYPASS [None]
